FAERS Safety Report 13484176 (Version 2)
Quarter: 2017Q4

REPORT INFORMATION
  Report Type: Spontaneous
  Country: US (occurrence: US)
  Receive Date: 20170425
  Receipt Date: 20171018
  Transmission Date: 20180320
  Serious: Yes (Death, Other)
  Sender: FDA-Public Use
  Company Number: US-BRISTOL-MYERS SQUIBB COMPANY-BMS-2017-033515

PATIENT
  Sex: Female
  Weight: 48.7 kg

DRUGS (1)
  1. OPDIVO [Suspect]
     Active Substance: NIVOLUMAB
     Indication: OVARIAN CANCER
     Dosage: 240 MG, UNK
     Route: 042
     Dates: start: 20170330, end: 20170330

REACTIONS (2)
  - Death [Fatal]
  - Product use in unapproved indication [Unknown]
